FAERS Safety Report 5055633-9 (Version None)
Quarter: 2006Q3

REPORT INFORMATION
  Report Type: 
  Country: None (occurrence: None)
  Receive Date: 20060719
  Receipt Date: 20060308
  Transmission Date: 20061208
  Serious: No
  Sender: FDA-Public Use
  Company Number: US-AMGEN-KDL171909

PATIENT
  Sex: Male
  Weight: 84 kg

DRUGS (1)
  1. PROCRIT [Suspect]
     Indication: RENAL FAILURE CHRONIC
     Dates: start: 20060101

REACTIONS (3)
  - BLOOD CREATINE INCREASED [None]
  - MALAISE [None]
  - MYALGIA [None]
